FAERS Safety Report 8834731 (Version 1)
Quarter: 2012Q4

REPORT INFORMATION
  Report Type: Report from Study
  Country: DE (occurrence: DE)
  Receive Date: 20121010
  Receipt Date: 20121010
  Transmission Date: 20130627
  Serious: Yes (Hospitalization, Other)
  Sender: FDA-Public Use
  Company Number: DE-TEVA-363199GER

PATIENT
  Age: 50 Year
  Sex: Female
  Weight: 91.4 kg

DRUGS (31)
  1. IRINOTECAN [Suspect]
     Indication: COLON CANCER
     Dosage: 324 Milligram Daily;
     Route: 042
     Dates: start: 20100310, end: 20100310
  2. IRINOTECAN [Suspect]
     Dosage: 324 Milligram Daily;
     Route: 042
     Dates: start: 20100324, end: 20100324
  3. IRINOTECAN [Suspect]
     Dosage: 324 Milligram Daily;
     Route: 042
     Dates: start: 20100721, end: 20100721
  4. IRINOTECAN [Suspect]
     Dosage: 324 Milligram Daily;
     Route: 042
     Dates: start: 20100804, end: 20100804
  5. IRINOTECAN [Suspect]
     Dosage: 324 Milligram Daily;
     Route: 042
     Dates: start: 20100818, end: 20100818
  6. FLUOROURACIL [Suspect]
     Indication: COLON CANCER
     Route: 042
     Dates: start: 20100310, end: 20100310
  7. FLUOROURACIL [Suspect]
     Route: 042
     Dates: start: 20100324, end: 20100324
  8. FLUOROURACIL [Suspect]
     Route: 042
     Dates: start: 20100721, end: 20100721
  9. FLUOROURACIL [Suspect]
     Route: 042
     Dates: start: 20100804, end: 20100804
  10. FLUOROURACIL [Suspect]
     Route: 042
     Dates: start: 20100818, end: 20100818
  11. FOLINIC ACID [Concomitant]
     Indication: COLON CANCER
     Dosage: 400 mg/m2 Daily;
     Route: 042
     Dates: start: 20100310, end: 20100310
  12. FOLINIC ACID [Concomitant]
     Dosage: 400 mg/m2 Daily;
     Route: 042
     Dates: start: 20100324, end: 20100324
  13. FOLINIC ACID [Concomitant]
     Dosage: 400 mg/m2 Daily;
     Route: 042
     Dates: start: 20100721, end: 20100721
  14. FOLINIC ACID [Concomitant]
     Dosage: 400 mg/m2 Daily;
     Route: 042
     Dates: start: 20100804, end: 20100804
  15. FOLINIC ACID [Concomitant]
     Dosage: 400 mg/m2 Daily;
     Route: 042
     Dates: start: 20100818, end: 20100818
  16. BEVACIZUMAB [Concomitant]
     Indication: COLON CANCER
     Route: 042
     Dates: start: 20100310, end: 20100310
  17. BEVACIZUMAB [Concomitant]
     Route: 042
     Dates: start: 20100324, end: 20100324
  18. BEVACIZUMAB [Concomitant]
     Route: 042
     Dates: start: 20100721, end: 20100721
  19. BEVACIZUMAB [Concomitant]
     Route: 042
     Dates: start: 20100804, end: 20100804
  20. BEVACIZUMAB [Concomitant]
     Route: 042
     Dates: start: 20100818, end: 20100818
  21. GRANISETRON [Concomitant]
     Indication: PREMEDICATION
     Dosage: 1 Milligram Daily;
     Route: 042
     Dates: start: 20100310, end: 20100310
  22. GRANISETRON [Concomitant]
     Dosage: 1 Milligram Daily;
     Route: 042
     Dates: start: 20100324, end: 20100324
  23. GRANISETRON [Concomitant]
     Dosage: 1 Milligram Daily;
     Route: 042
     Dates: start: 20100721, end: 20100721
  24. GRANISETRON [Concomitant]
     Dosage: 1 Milligram Daily;
     Route: 042
     Dates: start: 20100804, end: 20100804
  25. GRANISETRON [Concomitant]
     Dosage: 1 Milligram Daily;
     Route: 042
     Dates: start: 20100818, end: 20100818
  26. DEXAMETHASONE [Concomitant]
     Indication: PREMEDICATION
     Dosage: 8 Milligram Daily;
     Route: 042
     Dates: start: 20100310, end: 20100310
  27. DEXAMETHASONE [Concomitant]
     Dosage: 8 Milligram Daily;
     Route: 042
     Dates: start: 20100324, end: 20100324
  28. DEXAMETHASONE [Concomitant]
     Dosage: 8 Milligram Daily;
     Route: 042
     Dates: start: 20100721, end: 20100721
  29. DEXAMETHASONE [Concomitant]
     Dosage: 8 Milligram Daily;
     Route: 042
     Dates: start: 20100804, end: 20100804
  30. DEXAMETHASONE [Concomitant]
     Dosage: 8 Milligram Daily;
     Route: 042
     Dates: start: 20100818, end: 20100818
  31. METOCLOPRAMIDE [Concomitant]
     Indication: PREMEDICATION
     Dosage: 90 Gram Daily; when necessary
     Route: 048

REACTIONS (3)
  - Febrile neutropenia [Recovering/Resolving]
  - Escherichia sepsis [Recovering/Resolving]
  - Administration site abscess [Recovered/Resolved]
